FAERS Safety Report 20476517 (Version 1)
Quarter: 2022Q1

REPORT INFORMATION
  Report Type: Spontaneous
  Country: US (occurrence: US)
  Receive Date: 20220215
  Receipt Date: 20220215
  Transmission Date: 20220423
  Serious: Yes (Death)
  Sender: FDA-Public Use
  Company Number: US-PERRIGO-22US002526

PATIENT
  Age: 14 Year
  Sex: Female

DRUGS (4)
  1. ACETAMINOPHEN [Suspect]
     Active Substance: ACETAMINOPHEN
     Indication: Suspected suicide
     Dosage: UNKNOWN, UNKNOWN
     Route: 050
  2. BACLOFEN [Suspect]
     Active Substance: BACLOFEN
     Indication: Suspected suicide
     Dosage: UNKNOWN, UNKNOWN
     Route: 050
  3. QUETIAPINE [Suspect]
     Active Substance: QUETIAPINE
     Indication: Suspected suicide
     Dosage: UNKNOWN, UNKNOWN
     Route: 050
  4. ALCOHOL [Suspect]
     Active Substance: ALCOHOL
     Indication: Suspected suicide
     Dosage: UNKNOWN, UNKNOWN
     Route: 050

REACTIONS (1)
  - Exposure to toxic agent [Fatal]

NARRATIVE: CASE EVENT DATE: 20200101
